FAERS Safety Report 14582739 (Version 1)
Quarter: 2018Q1

REPORT INFORMATION
  Report Type: Spontaneous
  Country: US (occurrence: US)
  Receive Date: 20180228
  Receipt Date: 20180228
  Transmission Date: 20180509
  Serious: Yes (Other)
  Sender: FDA-Public Use
  Company Number: US-ASTELLAS-2018US010173

PATIENT
  Age: 94 Year
  Sex: Male

DRUGS (1)
  1. XTANDI [Suspect]
     Active Substance: ENZALUTAMIDE
     Indication: PROSTATE CANCER
     Route: 065
     Dates: start: 20170115, end: 20180213

REACTIONS (5)
  - Memory impairment [Unknown]
  - Wheelchair user [Unknown]
  - Gait inability [Unknown]
  - Confusional state [Unknown]
  - Dysstasia [Unknown]
